FAERS Safety Report 13603106 (Version 1)
Quarter: 2017Q2

REPORT INFORMATION
  Report Type: Spontaneous
  Country: MA (occurrence: MA)
  Receive Date: 20170601
  Receipt Date: 20170601
  Transmission Date: 20170830
  Serious: Yes (Other)
  Sender: FDA-Public Use
  Company Number: MA-ELI_LILLY_AND_COMPANY-MA201705008718

PATIENT
  Age: 62 Year
  Sex: Male

DRUGS (2)
  1. PEMETREXED. [Suspect]
     Active Substance: PEMETREXED
     Indication: NON-SMALL CELL LUNG CANCER METASTATIC
     Dosage: 500 MG/M2, CYCLICAL
     Route: 065
  2. FOLIC ACID. [Concomitant]
     Active Substance: FOLIC ACID
     Indication: PROPHYLAXIS
     Route: 065

REACTIONS (6)
  - Kidney fibrosis [Unknown]
  - Anaemia [Unknown]
  - Renal tubular necrosis [Unknown]
  - Nephropathy toxic [Recovering/Resolving]
  - Acute kidney injury [Recovering/Resolving]
  - Renal failure [Recovering/Resolving]
